FAERS Safety Report 6212825-0 (Version None)
Quarter: 2009Q2

REPORT INFORMATION
  Report Type: 
  Country: None (occurrence: None)
  Receive Date: 20090602
  Receipt Date: 20090602
  Transmission Date: 20091009
  Serious: Yes (Other)
  Sender: FDA-Public Use
  Company Number: None

PATIENT
  Age: 48 Year
  Sex: Female
  Weight: 78.0187 kg

DRUGS (1)
  1. PERCOCET [Suspect]
     Indication: PAIN
     Dosage: ONE PO TID
     Route: 048

REACTIONS (4)
  - DRUG ERUPTION [None]
  - ERYTHEMA [None]
  - PRODUCT SUBSTITUTION ISSUE [None]
  - RASH MACULAR [None]
